FAERS Safety Report 10249966 (Version 1)
Quarter: 2014Q2

REPORT INFORMATION
  Report Type: Spontaneous
  Country: US (occurrence: US)
  Receive Date: 20140620
  Receipt Date: 20140620
  Transmission Date: 20141212
  Serious: Yes (Other)
  Sender: FDA-Public Use
  Company Number: US-009507513-1406USA009658

PATIENT
  Sex: Male

DRUGS (2)
  1. JANUVIA [Suspect]
     Dosage: UNK
     Route: 048
     Dates: start: 20070208, end: 200712
  2. JANUMET [Suspect]
     Dosage: UNK
     Route: 048
     Dates: start: 20080418, end: 200907

REACTIONS (1)
  - Pancreatic carcinoma [Unknown]
